FAERS Safety Report 20817982 (Version 2)
Quarter: 2022Q4

REPORT INFORMATION
  Report Type: Other
  Country: IT (occurrence: IT)
  Receive Date: 20220512
  Receipt Date: 20221031
  Transmission Date: 20230113
  Serious: Yes (Other)
  Sender: FDA-Public Use
  Company Number: IT-CELLTRION INC.-2022IT006134

PATIENT

DRUGS (1)
  1. TRASTUZUMAB [Suspect]
     Active Substance: TRASTUZUMAB
     Indication: Product used for unknown indication
     Dosage: 630 MG

REACTIONS (2)
  - Hyperpyrexia [Recovered/Resolved]
  - Chills [Recovered/Resolved]

NARRATIVE: CASE EVENT DATE: 20220325
